FAERS Safety Report 21993646 (Version 3)
Quarter: 2023Q1

REPORT INFORMATION
  Report Type: Spontaneous
  Country: IT (occurrence: IT)
  Receive Date: 20230215
  Receipt Date: 20230320
  Transmission Date: 20230417
  Serious: Yes (Death, Life-Threatening, Hospitalization)
  Sender: FDA-Public Use
  Company Number: None

PATIENT
  Age: 82 Year
  Sex: Female
  Weight: 44 kg

DRUGS (1)
  1. PEMBROLIZUMAB [Suspect]
     Active Substance: PEMBROLIZUMAB
     Indication: Lung adenocarcinoma
     Dosage: 200 MG INTRAVENOUSLY EVERY 21 DAYS
     Route: 042
     Dates: start: 20220512, end: 20221223

REACTIONS (1)
  - Cholangitis acute [Fatal]

NARRATIVE: CASE EVENT DATE: 20230109
